FAERS Safety Report 8860438 (Version 1)
Quarter: 2012Q4

REPORT INFORMATION
  Report Type: 
  Country: US (occurrence: US)
  Receive Date: 20121025
  Receipt Date: 20121025
  Transmission Date: 20130627
  Serious: Yes (Other)
  Sender: FDA-Public Use
  Company Number: US-BAYER-2012-111533

PATIENT
  Age: 19 Year
  Sex: Female

DRUGS (6)
  1. BETASERON [Suspect]
     Dosage: 0.25 ml, weeks 1-2
     Route: 058
  2. BETASERON [Suspect]
     Dosage: 0.5 ml, weeks 3-4
     Route: 058
  3. BETASERON [Suspect]
     Dosage: 0.75 ml, weeks 5-6
     Route: 058
  4. BETASERON [Suspect]
     Dosage: 1 ml, QOD
     Route: 058
     Dates: end: 20121016
  5. ALEVE GELCAP [Concomitant]
  6. PREDNISONE [Concomitant]
     Dosage: 10 mg, UNK

REACTIONS (1)
  - Central nervous system lesion [Unknown]
